FAERS Safety Report 25969997 (Version 1)
Quarter: 2025Q4

REPORT INFORMATION
  Report Type: Spontaneous
  Country: EU (occurrence: EU)
  Receive Date: 20251028
  Receipt Date: 20251028
  Transmission Date: 20260117
  Serious: Yes (Hospitalization)
  Sender: PFIZER
  Company Number: None

PATIENT
  Age: 61 Year
  Sex: Male
  Weight: 86 kg

DRUGS (5)
  1. CYTARABINE [Suspect]
     Active Substance: CYTARABINE
     Indication: Acute myeloid leukaemia
     Dosage: 400 MG, 1X/DAY
     Route: 042
     Dates: start: 20250930
  2. DAUNORUBICIN HYDROCHLORIDE [Suspect]
     Active Substance: DAUNORUBICIN HYDROCHLORIDE
     Indication: Acute myeloid leukaemia
     Dosage: 120 MG, 1X/DAY
     Route: 042
     Dates: start: 20250930, end: 20251002
  3. AMLODIPINE [Concomitant]
     Active Substance: AMLODIPINE BESYLATE
     Indication: Product used for unknown indication
     Dosage: 5 MG, 1X/DAY
     Route: 048
  4. SYMBICORT [Concomitant]
     Active Substance: BUDESONIDE\FORMOTEROL FUMARATE DIHYDRATE
     Indication: Product used for unknown indication
     Dosage: 2 DF (2 X 400/12 UG/DOSE), 1X/DAY
  5. ESOMEPRAZOLE [Concomitant]
     Active Substance: ESOMEPRAZOLE
     Indication: Product used for unknown indication
     Dosage: 40 MG, 1X/DAY
     Route: 048

REACTIONS (2)
  - Myocarditis [Recovering/Resolving]
  - Pericardial effusion [Recovering/Resolving]

NARRATIVE: CASE EVENT DATE: 20251002
